FAERS Safety Report 5085587-0 (Version None)
Quarter: 2006Q3

REPORT INFORMATION
  Report Type: 
  Country: None (occurrence: None)
  Receive Date: 20060822
  Receipt Date: 20040914
  Transmission Date: 20061208
  Serious: Yes (Death, Hospitalization)
  Sender: FDA-Public Use
  Company Number: 2004JP001671

PATIENT
  Age: 10 Year
  Sex: Female

DRUGS (2)
  1. AMOXICILLIN [Suspect]
     Indication: UPPER RESPIRATORY TRACT INFECTION
     Route: 065
     Dates: start: 19870117
  2. MEROPENEM [Concomitant]
     Route: 065

REACTIONS (19)
  - BLINDNESS UNILATERAL [None]
  - CONJUNCTIVITIS [None]
  - CORNEAL OPACITY [None]
  - DYSPNOEA [None]
  - HEPATIC FUNCTION ABNORMAL [None]
  - HYPERCAPNIA [None]
  - HYPOXIA [None]
  - INFLAMMATION [None]
  - LUNG HYPERINFLATION [None]
  - MOUTH ULCERATION [None]
  - OBLITERATIVE BRONCHIOLITIS [None]
  - PLEURAL ADHESION [None]
  - PNEUMOTHORAX [None]
  - PRODUCTIVE COUGH [None]
  - PULMONARY FUNCTION TEST DECREASED [None]
  - PYREXIA [None]
  - RESPIRATORY FAILURE [None]
  - RESPIRATORY TRACT INFECTION [None]
  - STEVENS-JOHNSON SYNDROME [None]
